FAERS Safety Report 17966295 (Version 9)
Quarter: 2022Q3

REPORT INFORMATION
  Report Type: Spontaneous
  Country: FR (occurrence: FR)
  Receive Date: 20200701
  Receipt Date: 20220810
  Transmission Date: 20221026
  Serious: Yes (Death, Hospitalization, Other)
  Sender: FDA-Public Use
  Company Number: FR-CELLTRION INC.-2020FR023773

PATIENT

DRUGS (22)
  1. RITUXIMAB [Suspect]
     Active Substance: RITUXIMAB
     Indication: Neuromyelitis optica spectrum disorder
     Dosage: MONOTHERAPY FOR 3 YEARS
     Route: 065
  2. RITUXIMAB [Suspect]
     Active Substance: RITUXIMAB
     Indication: Antibody test abnormal
     Dosage: 375 MG/M2 (620 MG) FOUR INFUSIONS (INFUSION 1)/ 620MG UNK
     Route: 065
     Dates: start: 201507
  3. RITUXIMAB [Suspect]
     Active Substance: RITUXIMAB
     Indication: Demyelination
     Dosage: 375 MG/M2 (620 MG) FOUR INFUSIONS (INFUSION 2)
     Route: 042
     Dates: start: 201507
  4. RITUXIMAB [Suspect]
     Active Substance: RITUXIMAB
     Dosage: 375 MG/M2 (620 MG) FOUR INFUSIONS (INFUSION 3)
     Route: 042
     Dates: start: 201507
  5. RITUXIMAB [Suspect]
     Active Substance: RITUXIMAB
     Dosage: 375 MG/M2 (620 MG) FOUR INFUSIONS (INFUSION 4)
     Route: 042
     Dates: start: 201507
  6. RITUXIMAB [Suspect]
     Active Substance: RITUXIMAB
     Dosage: 1 G EVERY 6 MONTHS
     Route: 042
     Dates: start: 201606, end: 201706
  7. RITUXIMAB [Suspect]
     Active Substance: RITUXIMAB
     Dosage: 1000 MG
     Route: 065
  8. RITUXIMAB [Suspect]
     Active Substance: RITUXIMAB
     Dosage: 1 G EVERY 6 MONTHS
     Route: 051
     Dates: start: 201803, end: 201809
  9. RITUXIMAB [Suspect]
     Active Substance: RITUXIMAB
     Dosage: 1 G, INFUSION, SOLUTION
     Route: 042
     Dates: start: 201803
  10. RITUXIMAB [Suspect]
     Active Substance: RITUXIMAB
     Dosage: 1000 MG, INFUSION, SOLUTION
     Route: 042
     Dates: start: 201809
  11. RITUXIMAB [Suspect]
     Active Substance: RITUXIMAB
     Dosage: 1 G EVERY 6 MONTHS
     Route: 065
     Dates: start: 201607, end: 201706
  12. RITUXIMAB [Suspect]
     Active Substance: RITUXIMAB
     Dosage: 1000 MG (ADDITIONAL INFO: ROUTE:065(16-JAN-15))
     Dates: start: 201809
  13. RITUXIMAB [Suspect]
     Active Substance: RITUXIMAB
     Dosage: MONOTHERAPY FOR 3 YEARS (ADDITIONAL INFO: ROUTE:065(16-JAN-15))
  14. RITUXIMAB [Suspect]
     Active Substance: RITUXIMAB
     Dosage: 1 G (ADDITIONAL INFO: ROUTE:065(16-JAN-15))
     Dates: start: 201803
  15. RITUXIMAB [Suspect]
     Active Substance: RITUXIMAB
     Dosage: 620 MG, UNK (ADDITIONAL INFO: ROUTE:065(16-JAN-15))
     Dates: start: 201507
  16. RITUXIMAB [Suspect]
     Active Substance: RITUXIMAB
     Dosage: 1 G, EVERY 6 MONTHS (ADDITIONAL INFO: ROUTE:065(16-JAN-15))
     Dates: start: 201803, end: 201809
  17. RITUXIMAB [Suspect]
     Active Substance: RITUXIMAB
     Dosage: 375 MG/M2, FOUR INFUSIONS (ADDITIONAL INFO: ROUTE:065(16-JAN-15))
     Dates: start: 201507
  18. RITUXIMAB [Suspect]
     Active Substance: RITUXIMAB
     Dosage: 1 G, EVERY 6 MONTHS (ADDITIONAL INFO: ROUTE:065(16-JAN-15))
     Dates: start: 201606, end: 201706
  19. TYSABRI [Suspect]
     Active Substance: NATALIZUMAB
     Indication: Multiple sclerosis
     Dosage: UNK
     Route: 065
     Dates: start: 201306, end: 201410
  20. PREDNISOLONE [Suspect]
     Active Substance: PREDNISOLONE
     Indication: Demyelination
     Route: 048
  21. METHYLPREDNISOLONE [Suspect]
     Active Substance: METHYLPREDNISOLONE
     Indication: Demyelination
     Dosage: 1 GRAM, DAILY
     Route: 065
  22. FLUOXETINE [Concomitant]
     Active Substance: FLUOXETINE HYDROCHLORIDE

REACTIONS (28)
  - Optic neuritis [Fatal]
  - Autoimmune demyelinating disease [Fatal]
  - Dysmetria [Fatal]
  - Dysarthria [Fatal]
  - Ataxia [Fatal]
  - Cardiogenic shock [Fatal]
  - Neurological decompensation [Fatal]
  - Pregnancy [Unknown]
  - Coxsackie viral infection [Fatal]
  - Myelitis [Fatal]
  - Coxsackie myocarditis [Fatal]
  - Arrhythmia [Fatal]
  - Bacterial sepsis [Fatal]
  - Meningitis coxsackie viral [Fatal]
  - Respiratory failure [Fatal]
  - Meningitis enteroviral [Fatal]
  - Vomiting [Fatal]
  - Nausea [Fatal]
  - Meningitis coxsackie viral [Fatal]
  - Viral myocarditis [Fatal]
  - Renal failure [Unknown]
  - Sepsis [Unknown]
  - Intentional product use issue [Fatal]
  - Therapeutic product effect incomplete [Fatal]
  - Product use in unapproved indication [Fatal]
  - Off label use [Unknown]
  - Maternal exposure during pregnancy [Unknown]
  - Intentional product use issue [Unknown]

NARRATIVE: CASE EVENT DATE: 20150101
